FAERS Safety Report 17507049 (Version 1)
Quarter: 2020Q1

REPORT INFORMATION
  Report Type: Spontaneous
  Country: GB (occurrence: GB)
  Receive Date: 20200306
  Receipt Date: 20200306
  Transmission Date: 20200409
  Serious: Yes (Other)
  Sender: FDA-Public Use
  Company Number: GB-TEVA-2020-GB-1195285

PATIENT
  Age: 45 Year
  Sex: Male
  Weight: 86 kg

DRUGS (7)
  1. PROCHLORPERAZINE. [Concomitant]
     Active Substance: PROCHLORPERAZINE
     Dosage: 1 DOSAGE FORM
     Dates: start: 20200110
  2. NAPROXEN. [Suspect]
     Active Substance: NAPROXEN
     Dosage: 500MG
     Dates: start: 20200110
  3. LOPERAMIDE [Concomitant]
     Active Substance: LOPERAMIDE
     Dosage: 1-2
     Dates: start: 20200110
  4. MEBEVERINE HYDROCHLORIDE [Concomitant]
     Active Substance: MEBEVERINE HYDROCHLORIDE
     Dosage: 1 DOSAGE FORM
     Dates: start: 20200110
  5. PARACETAMOL [Concomitant]
     Active Substance: ACETAMINOPHEN
     Dosage: 2 DOSAGE FORMS
     Dates: start: 20200110
  6. CITALOPRAM [Concomitant]
     Active Substance: CITALOPRAM HYDROBROMIDE
     Dosage: 1 DOSAGE FORM
     Dates: start: 20190705, end: 20200110
  7. IBUPROFEN. [Concomitant]
     Active Substance: IBUPROFEN
     Dosage: 1 DOSAGE FORM
     Dates: start: 20191115, end: 20191115

REACTIONS (2)
  - Muscle spasms [Not Recovered/Not Resolved]
  - Eczema [Not Recovered/Not Resolved]

NARRATIVE: CASE EVENT DATE: 20200110
